FAERS Safety Report 6739298-3 (Version None)
Quarter: 2010Q2

REPORT INFORMATION
  Report Type: 
  Country: None (occurrence: None)
  Receive Date: 20100524
  Receipt Date: 20100524
  Transmission Date: 20101027
  Serious: Yes (Other)
  Sender: FDA-Public Use
  Company Number: None

PATIENT
  Age: 34 Year
  Sex: Male
  Weight: 136.0791 kg

DRUGS (1)
  1. RISPERDAL [Suspect]
     Indication: DEPRESSION
     Dosage: 2 MG UD BY MOUTH
     Route: 048
     Dates: start: 20081112, end: 20090107

REACTIONS (1)
  - DIABETES MELLITUS INADEQUATE CONTROL [None]
